FAERS Safety Report 18325352 (Version 1)
Quarter: 2020Q3

REPORT INFORMATION
  Report Type: Spontaneous
  Country: US (occurrence: US)
  Receive Date: 20200929
  Receipt Date: 20200929
  Transmission Date: 20201103
  Serious: Yes (Death)
  Sender: FDA-Public Use
  Company Number: US-AKRON, INC.-2092274

PATIENT
  Age: 9 Year

DRUGS (1)
  1. PHENYLEPHRINE HYDROCHLORIDE. [Suspect]
     Active Substance: PHENYLEPHRINE HYDROCHLORIDE

REACTIONS (3)
  - Pulmonary oedema [Fatal]
  - Cardiac arrest [Fatal]
  - Off label use [Fatal]
